FAERS Safety Report 21902640 (Version 1)
Quarter: 2023Q1

REPORT INFORMATION
  Report Type: Spontaneous
  Country: US (occurrence: US)
  Receive Date: 20230124
  Receipt Date: 20230124
  Transmission Date: 20230418
  Serious: No
  Sender: FDA-Public Use
  Company Number: US-TEVA-2023-US-2846082

PATIENT
  Sex: Male

DRUGS (2)
  1. HYDROCHLOROTHIAZIDE\TRIAMTERENE [Suspect]
     Active Substance: HYDROCHLOROTHIAZIDE\TRIAMTERENE
     Indication: Product used for unknown indication
     Dosage: 37.5 MG / 25 MG
     Route: 065
     Dates: end: 20181012
  2. HYDROCHLOROTHIAZIDE\TRIAMTERENE [Suspect]
     Active Substance: HYDROCHLOROTHIAZIDE\TRIAMTERENE
     Dosage: 37.5 MG / 25 MG
     Route: 065

REACTIONS (8)
  - Palpitations [Unknown]
  - Heart rate increased [Unknown]
  - Asthenia [Unknown]
  - Cold sweat [Unknown]
  - Chills [Unknown]
  - Feeling abnormal [Unknown]
  - Illness [Unknown]
  - Malaise [Unknown]
